FAERS Safety Report 6510352-4 (Version None)
Quarter: 2009Q4

REPORT INFORMATION
  Report Type: 
  Country: None (occurrence: None)
  Receive Date: 20091222
  Receipt Date: 20090925
  Transmission Date: 20100525
  Serious: No
  Sender: FDA-Public Use
  Company Number: US-ASTRAZENECA-2009SE15761

PATIENT
  Age: 78 Year
  Sex: Female
  Weight: 42.6 kg

DRUGS (5)
  1. CRESTOR [Suspect]
     Route: 048
     Dates: start: 20090501
  2. ALPHAGAN [Concomitant]
     Indication: GLAUCOMA
  3. AZOPT [Concomitant]
     Indication: GLAUCOMA
  4. VITAMINS [Concomitant]
  5. FISH OIL [Concomitant]

REACTIONS (2)
  - MUSCULAR WEAKNESS [None]
  - PAIN [None]
